FAERS Safety Report 9279225 (Version 1)
Quarter: 2013Q2

REPORT INFORMATION
  Report Type: Spontaneous
  Country: US (occurrence: US)
  Receive Date: 20130508
  Receipt Date: 20130508
  Transmission Date: 20140414
  Serious: Yes (Other)
  Sender: FDA-Public Use
  Company Number: CHPA2013US007500

PATIENT
  Age: 42 Year
  Sex: Female

DRUGS (5)
  1. EXCEDRIN MIGRAINE [Suspect]
     Indication: HEADACHE
     Dosage: UNK, UNK
     Route: 048
  2. EXCEDRIN MIGRAINE [Suspect]
     Indication: FROSTBITE
  3. TRAMADOL [Concomitant]
     Indication: PAIN
     Dosage: UNK, PRN
  4. NAPROSYN [Concomitant]
     Indication: PAIN
     Dosage: UNK, PRN
  5. BENADRYL ^PFIZER WARNER-LAMBERT^ [Concomitant]
     Indication: NEUROPATHY PERIPHERAL
     Dosage: UNK
     Route: 065
     Dates: start: 201304

REACTIONS (5)
  - Fibromyalgia [Not Recovered/Not Resolved]
  - Alopecia [Not Recovered/Not Resolved]
  - Headache [Recovered/Resolved]
  - Off label use [Unknown]
  - Drug ineffective [Unknown]
